FAERS Safety Report 7572109-5 (Version None)
Quarter: 2011Q2

REPORT INFORMATION
  Report Type: 
  Country: None (occurrence: None)
  Receive Date: 20110624
  Receipt Date: 20110614
  Transmission Date: 20111010
  Serious: Yes (Hospitalization)
  Sender: FDA-Public Use
  Company Number: JP-PFIZER INC-2011020786

PATIENT
  Sex: Male

DRUGS (10)
  1. NORVASC [Suspect]
     Dosage: 5 MG, 2X/DAY
     Route: 048
     Dates: start: 20040906, end: 20101208
  2. HOKUNALIN [Concomitant]
     Dosage: UNK
     Dates: start: 20071001, end: 20101208
  3. DICLOFENAC SODIUM [Concomitant]
     Dosage: UNK
     Dates: start: 20080507, end: 20080716
  4. SELBEX [Concomitant]
     Dosage: UNK
     Dates: start: 20071225, end: 20101208
  5. MONTELUKAST SODIUM [Suspect]
     Indication: ASTHMA
     Dosage: 10 MG, 1X/DAY
     Route: 048
     Dates: start: 20100209
  6. HOCHUUEKKITOU [Suspect]
     Indication: MALAISE
     Dosage: UNK
     Dates: start: 20080616, end: 20101208
  7. CELECOXIB [Suspect]
     Indication: OSTEOARTHRITIS
     Dosage: 200 MG/D
     Route: 048
     Dates: start: 20071225, end: 20101208
  8. SPIRIVA [Suspect]
     Dosage: 18 UG, 1X/DAY
     Route: 055
     Dates: start: 20101015, end: 20101208
  9. TAMSULOSIN HCL [Suspect]
     Indication: BENIGN PROSTATIC HYPERPLASIA
     Dosage: 0.2 MG, 1X/DAY
     Route: 048
     Dates: start: 20060516, end: 20101208
  10. VESICARE [Suspect]
     Indication: HYPERTONIC BLADDER
     Dosage: 5 MG, 1X/DAY
     Route: 048
     Dates: start: 20091215, end: 20101208

REACTIONS (1)
  - CARDIAC FAILURE [None]
